FAERS Safety Report 4629317-2 (Version None)
Quarter: 2005Q2

REPORT INFORMATION
  Report Type: 
  Country: None (occurrence: None)
  Receive Date: 20050405
  Receipt Date: 20050321
  Transmission Date: 20051028
  Serious: Yes (Other)
  Sender: FDA-Public Use
  Company Number: 2005-BP-04534BP

PATIENT
  Age: 30 Year
  Sex: Female

DRUGS (3)
  1. VIRAMUNE [Suspect]
     Indication: HIV INFECTION
     Dosage: 200 MG, PO
     Route: 048
     Dates: start: 20040427
  2. DIDANOSINE [Suspect]
     Indication: HIV INFECTION
     Dates: start: 20040427
  3. ZIDOVUDINE [Suspect]
     Indication: HIV INFECTION
     Dates: start: 20040427

REACTIONS (1)
  - BLOOD AMYLASE INCREASED [None]
